FAERS Safety Report 21938870 (Version 1)
Quarter: 2023Q1

REPORT INFORMATION
  Report Type: Report from Study
  Country: US (occurrence: US)
  Receive Date: 20230201
  Receipt Date: 20230201
  Transmission Date: 20230418
  Serious: Yes (Other)
  Sender: FDA-Public Use
  Company Number: US-EXELIXIS-CABO-22050858

PATIENT
  Age: 74 Year
  Sex: Male
  Weight: 74.83 kg

DRUGS (4)
  1. CABOMETYX [Suspect]
     Active Substance: CABOZANTINIB S-MALATE
     Indication: Renal cancer
     Dosage: 40 MG, QD
     Route: 048
     Dates: start: 20210821
  2. CABOMETYX [Suspect]
     Active Substance: CABOZANTINIB S-MALATE
     Dosage: 20 MG, QD
     Route: 048
     Dates: start: 202110
  3. CABOMETYX [Suspect]
     Active Substance: CABOZANTINIB S-MALATE
     Dosage: 20 MG, QD
     Route: 048
     Dates: end: 202206
  4. CABOMETYX [Suspect]
     Active Substance: CABOZANTINIB S-MALATE
     Dosage: 20 MG, QD
     Route: 048
     Dates: start: 202206

REACTIONS (12)
  - Renal cancer [Unknown]
  - Laboratory test abnormal [Unknown]
  - Nervousness [Unknown]
  - Stress [Unknown]
  - Hypoaesthesia [Unknown]
  - Nail discolouration [Unknown]
  - Contusion [Unknown]
  - Fatigue [Unknown]
  - Dry skin [Unknown]
  - Stomatitis [Unknown]
  - Lymphadenopathy [Unknown]
  - Urinary tract infection [Unknown]

NARRATIVE: CASE EVENT DATE: 20220601
